FAERS Safety Report 7113681-9 (Version None)
Quarter: 2010Q4

REPORT INFORMATION
  Report Type: 
  Country: None (occurrence: None)
  Receive Date: 20101119
  Receipt Date: 20101105
  Transmission Date: 20110411
  Serious: Yes (Life-Threatening, Hospitalization)
  Sender: FDA-Public Use
  Company Number: FR-SANOFI-AVENTIS-2010SA043176

PATIENT
  Age: 62 Year
  Sex: Female
  Weight: 63 kg

DRUGS (10)
  1. TAXOTERE [Suspect]
     Indication: BREAST CANCER
     Route: 041
     Dates: start: 20100709, end: 20100709
  2. SOLUPRED [Suspect]
     Indication: PREMEDICATION
     Route: 048
     Dates: start: 20100709, end: 20100709
  3. EMEND [Suspect]
     Indication: PREMEDICATION
     Route: 048
     Dates: start: 20100709, end: 20100709
  4. MEDROL [Concomitant]
     Route: 048
     Dates: start: 20100701, end: 20100701
  5. ZOPHREN [Concomitant]
     Indication: PREMEDICATION
     Route: 042
     Dates: start: 20100709, end: 20100709
  6. FOZITEC [Concomitant]
     Route: 048
  7. FUROSEMIDE [Concomitant]
     Route: 048
  8. SERESTA [Concomitant]
     Route: 048
  9. PROPRANOLOL [Concomitant]
  10. BETASERC [Concomitant]
     Route: 048

REACTIONS (5)
  - CONJUNCTIVITIS [None]
  - DIARRHOEA HAEMORRHAGIC [None]
  - FEBRILE BONE MARROW APLASIA [None]
  - MUCOSAL INFLAMMATION [None]
  - TOXIC EPIDERMAL NECROLYSIS [None]
